FAERS Safety Report 5487738-2 (Version None)
Quarter: 2007Q3

REPORT INFORMATION
  Report Type: 
  Country: None (occurrence: None)
  Receive Date: 20070928
  Receipt Date: 20061127
  Transmission Date: 20080115
  Serious: Yes (Hospitalization)
  Sender: FDA-Public Use
  Company Number: 150265USA

PATIENT
  Age: 79 Year
  Sex: Male

DRUGS (1)
  1. CARBIDOPA + LEVODOPA [Suspect]
     Indication: PARKINSON'S DISEASE
     Dosage: 25 MG/100MG, ORAL
     Route: 048
     Dates: start: 20060201

REACTIONS (2)
  - DRUG INEFFECTIVE [None]
  - PARKINSON'S DISEASE [None]
